FAERS Safety Report 11756788 (Version 2)
Quarter: 2016Q1

REPORT INFORMATION
  Report Type: Report from Study
  Country: JP (occurrence: JP)
  Receive Date: 20151120
  Receipt Date: 20160224
  Transmission Date: 20160525
  Serious: Yes (Hospitalization, Other)
  Sender: FDA-Public Use
  Company Number: JP-009507513-1511JPN008156

PATIENT
  Age: 1 Year
  Sex: Male
  Weight: 7.6 kg

DRUGS (7)
  1. HYCAMTIN [Suspect]
     Active Substance: TOPOTECAN HYDROCHLORIDE
     Dosage: DAILY DOSAGE UNKNOWN
     Route: 041
     Dates: start: 20141020, end: 20141024
  2. TEMOZOLOMIDE. [Suspect]
     Active Substance: TEMOZOLOMIDE
     Indication: HEPATOBLASTOMA
     Dosage: 100 MG/M2, QD
     Route: 041
     Dates: start: 20140919, end: 20140923
  3. FUNGIZONE [Concomitant]
     Active Substance: AMPHOTERICIN B
     Indication: PROPHYLAXIS
     Dosage: FORMULATION: POR,DAILY DOSAGE UNKNOWN
     Route: 048
  4. TEMOZOLOMIDE. [Suspect]
     Active Substance: TEMOZOLOMIDE
     Dosage: 100 MG/M2,QD
     Route: 041
     Dates: start: 20141020, end: 20141024
  5. HYCAMTIN [Suspect]
     Active Substance: TOPOTECAN HYDROCHLORIDE
     Dosage: DAILY DOSAGE UNKNOWN
     Route: 041
     Dates: start: 20140919, end: 20140923
  6. BACTRAMIN [Concomitant]
     Active Substance: SULFAMETHOXAZOLE\TRIMETHOPRIM
     Indication: ANTIFUNGAL PROPHYLAXIS
     Dosage: FORMULATION: POR, DAILY DOSAGE UNKNOWN
     Route: 048
  7. GRANISETRON [Concomitant]
     Active Substance: GRANISETRON
     Indication: PROPHYLAXIS
     Dosage: DAILY DOSAGE UNKNOWN
     Route: 042
     Dates: start: 20140919, end: 20140923

REACTIONS (9)
  - Neutrophil count decreased [Recovering/Resolving]
  - C-reactive protein increased [Recovered/Resolved]
  - Aspartate aminotransferase increased [Recovered/Resolved]
  - Alanine aminotransferase increased [Recovered/Resolved]
  - White blood cell count decreased [Recovered/Resolved]
  - White blood cell count decreased [Recovered/Resolved]
  - Anaemia [Recovered/Resolved]
  - Platelet count decreased [Recovered/Resolved]
  - Febrile neutropenia [Recovered/Resolved]

NARRATIVE: CASE EVENT DATE: 20140925
